FAERS Safety Report 14293715 (Version 1)
Quarter: 2017Q4

REPORT INFORMATION
  Report Type: Spontaneous
  Country: US (occurrence: US)
  Receive Date: 20171216
  Receipt Date: 20171216
  Transmission Date: 20180321
  Serious: No
  Sender: FDA-Public Use
  Company Number: US-ASTRAZENECA-2017SF27811

PATIENT
  Age: 68 Year
  Sex: Female
  Weight: 118 kg

DRUGS (1)
  1. NEXIUM [Suspect]
     Active Substance: ESOMEPRAZOLE MAGNESIUM
     Indication: GASTROOESOPHAGEAL REFLUX DISEASE
     Route: 048
     Dates: start: 2016

REACTIONS (6)
  - Back pain [Unknown]
  - Renal pain [Not Recovered/Not Resolved]
  - Pain [Unknown]
  - Renal disorder [Not Recovered/Not Resolved]
  - Urinary incontinence [Unknown]
  - Dysstasia [Recovered/Resolved]
